FAERS Safety Report 4620065-1 (Version None)
Quarter: 2005Q1

REPORT INFORMATION
  Report Type: 
  Country: None (occurrence: None)
  Receive Date: 20050323
  Receipt Date: 20050323
  Transmission Date: 20050727
  Serious: Yes (Other)
  Sender: FDA-Public Use
  Company Number: None

PATIENT
  Age: 48 Year
  Sex: Male
  Weight: 132.9039 kg

DRUGS (1)
  1. HALOPERIDOL [Suspect]
     Dosage: 200MG   Q4W   INTRAMUSCU
     Route: 030

REACTIONS (1)
  - TREMOR [None]
